FAERS Safety Report 12584105 (Version 1)
Quarter: 2016Q3

REPORT INFORMATION
  Report Type: Spontaneous
  Country: US (occurrence: US)
  Receive Date: 20160722
  Receipt Date: 20160722
  Transmission Date: 20161109
  Serious: Yes (Disabling)
  Sender: FDA-Public Use
  Company Number: US-TEIKOKU PHARMA USA-TPU2016-00480

PATIENT
  Sex: Female
  Weight: 52.21 kg

DRUGS (3)
  1. LIDODERM [Suspect]
     Active Substance: LIDOCAINE
     Indication: NEURALGIA
     Dosage: 12 HOURS, PATCH APPLIED TO THE SKIN, AS NEEDED
     Route: 061
     Dates: start: 2006
  2. LIDOCAINE PATCH [Suspect]
     Active Substance: LIDOCAINE
     Indication: NEURALGIA
     Dosage: 12 HOURS, PATCH APPLIED TO THE SKIN, AS NEEDED
  3. LIDODERM [Suspect]
     Active Substance: LIDOCAINE
     Indication: BACK PAIN

REACTIONS (3)
  - Migraine [Unknown]
  - Fibromyalgia [Unknown]
  - Disability [Unknown]

NARRATIVE: CASE EVENT DATE: 2009
